FAERS Safety Report 9685930 (Version 2)
Quarter: 2013Q4

REPORT INFORMATION
  Report Type: Spontaneous
  Country: US (occurrence: US)
  Receive Date: 20131113
  Receipt Date: 20131113
  Transmission Date: 20140711
  Serious: No
  Sender: FDA-Public Use
  Company Number: US-ALLERGAN-1312550US

PATIENT
  Sex: Female
  Weight: 52.15 kg

DRUGS (2)
  1. COMBIGAN[R] [Suspect]
     Indication: INTRAOCULAR PRESSURE INCREASED
     Dosage: 2 DROPS IN THE LEFT EYE, TWICE A DAY
     Dates: start: 2012
  2. AZOPT [Suspect]
     Indication: INTRAOCULAR PRESSURE INCREASED
     Dosage: 2 DROPS IN THE LEFT EYE, TWICE A DAY
     Dates: start: 2012

REACTIONS (2)
  - Eyelid pain [Unknown]
  - Erythema of eyelid [Unknown]
